FAERS Safety Report 7834167-X (Version None)
Quarter: 2011Q4

REPORT INFORMATION
  Report Type: 
  Country: None (occurrence: None)
  Receive Date: 20111024
  Receipt Date: 20111014
  Transmission Date: 20120403
  Serious: Yes (Other)
  Sender: FDA-Public Use
  Company Number: PHEH2011US06867

PATIENT
  Sex: Male

DRUGS (4)
  1. EXJADE [Suspect]
     Dosage: 1000 MG, DAILY
     Route: 048
  2. ANTACIDS WITH ANTIFLATULENTS [Concomitant]
  3. CALCIUM CARBONATE [Concomitant]
  4. MAGNESIUM HYDROXIDE TAB [Interacting]
     Dosage: 0.5 TSP, EVERY 2 HOURS

REACTIONS (3)
  - ABDOMINAL PAIN [None]
  - FLATULENCE [None]
  - PLATELET COUNT DECREASED [None]
